FAERS Safety Report 16619465 (Version 1)
Quarter: 2019Q3

REPORT INFORMATION
  Report Type: Spontaneous
  Country: JP (occurrence: JP)
  Receive Date: 20190723
  Receipt Date: 20190723
  Transmission Date: 20191004
  Serious: Yes (Death)
  Sender: FDA-Public Use
  Company Number: JP-PFIZER INC-2019307247

PATIENT
  Age: 57 Year
  Sex: Male

DRUGS (3)
  1. CRIZOTINIB [Suspect]
     Active Substance: CRIZOTINIB
     Indication: INFLAMMATORY MYOFIBROBLASTIC TUMOUR
     Dosage: UNK, CYCLIC (THIRD-LINE TREATMENT)
     Dates: start: 20131120, end: 20131209
  2. CISPLATIN. [Suspect]
     Active Substance: CISPLATIN
     Indication: INFLAMMATORY MYOFIBROBLASTIC TUMOUR
     Dosage: UNK, CYCLIC (FOUR CYCLES, FOURTH-LINE TREATMENT)
     Dates: start: 20140115, end: 20140402
  3. PEMETREXED. [Suspect]
     Active Substance: PEMETREXED
     Indication: INFLAMMATORY MYOFIBROBLASTIC TUMOUR
     Dosage: UNK, CYCLIC  (FOUR CYCLES, FOURTH-LINE TREATMENT BETWEEN 15 JANUARY AND 2 APRIL, 2014)
     Dates: start: 20140115, end: 20140402

REACTIONS (1)
  - Neoplasm progression [Fatal]
